FAERS Safety Report 4749706-5 (Version None)
Quarter: 2005Q3

REPORT INFORMATION
  Report Type: 
  Country: None (occurrence: None)
  Receive Date: 20050822
  Receipt Date: 20050513
  Transmission Date: 20060218
  Serious: Yes (Hospitalization, Disabling)
  Sender: FDA-Public Use
  Company Number: US-MERCK-0505USA01929

PATIENT
  Age: 55 Year
  Sex: Male
  Weight: 80 kg

DRUGS (11)
  1. VIOXX [Suspect]
     Indication: ARTHRITIS
     Route: 048
     Dates: start: 20010803, end: 20040930
  2. VIOXX [Suspect]
     Route: 048
     Dates: start: 20010803, end: 20040930
  3. VIOXX [Suspect]
     Indication: LUMBAR RADICULOPATHY
     Route: 048
     Dates: start: 20010803, end: 20040930
  4. VIOXX [Suspect]
     Route: 048
     Dates: start: 20010803, end: 20040930
  5. CELEBREX [Concomitant]
     Route: 065
     Dates: start: 20010601, end: 20010801
  6. VASOTEC RPD [Concomitant]
     Route: 065
  7. TOPROL-XL [Concomitant]
     Route: 065
  8. ATIVAN [Concomitant]
     Route: 065
  9. PRAVACHOL [Concomitant]
     Route: 065
  10. ASPIRIN [Concomitant]
     Route: 065
  11. ZANTAC [Concomitant]
     Route: 065

REACTIONS (4)
  - ANXIETY [None]
  - CORONARY ARTERY DISEASE [None]
  - DEPRESSION [None]
  - MYOCARDIAL INFARCTION [None]
